FAERS Safety Report 25332058 (Version 1)
Quarter: 2025Q2

REPORT INFORMATION
  Report Type: Spontaneous
  Country: US (occurrence: US)
  Receive Date: 20250519
  Receipt Date: 20250519
  Transmission Date: 20250716
  Serious: No
  Sender: AMGEN
  Company Number: US-AMGEN-USASP2025092503

PATIENT
  Sex: Male

DRUGS (1)
  1. RIABNI [Suspect]
     Active Substance: RITUXIMAB-ARRX
     Indication: Hypoglycaemic encephalopathy
     Route: 065

REACTIONS (2)
  - Antibody test abnormal [Unknown]
  - Off label use [Unknown]
